FAERS Safety Report 25719353 (Version 1)
Quarter: 2025Q3

REPORT INFORMATION
  Report Type: Spontaneous
  Country: US (occurrence: US)
  Receive Date: 20250824
  Receipt Date: 20250824
  Transmission Date: 20251021
  Serious: No
  Sender: ELI LILLY AND COMPANY
  Company Number: US-ELI_LILLY_AND_COMPANY-US202508014201

PATIENT
  Age: 86 Year
  Sex: Female
  Weight: 43.54 kg

DRUGS (1)
  1. BASAGLAR [Suspect]
     Active Substance: INSULIN GLARGINE
     Indication: Product used for unknown indication
     Route: 065
     Dates: start: 202507

REACTIONS (3)
  - Discomfort [Unknown]
  - Anxiety [Unknown]
  - Product administered at inappropriate site [Unknown]
